FAERS Safety Report 8339782-5 (Version None)
Quarter: 2012Q2

REPORT INFORMATION
  Report Type: 
  Country: None (occurrence: None)
  Receive Date: 20120507
  Receipt Date: 20120426
  Transmission Date: 20120825
  Serious: Yes (Life-Threatening)
  Sender: FDA-Public Use
  Company Number: IT-SANOFI-AVENTIS-2009SA001913

PATIENT
  Age: 62 Year
  Sex: Male

DRUGS (9)
  1. ENOXAPARIN SODIUM [Suspect]
     Indication: PULMONARY INFARCTION
     Route: 058
     Dates: start: 20090813, end: 20090909
  2. LASIX [Suspect]
     Route: 048
     Dates: start: 20090827, end: 20090902
  3. DEXAMETHASONE SODIUM PHOSPHATE [Concomitant]
     Indication: OEDEMA
     Route: 048
     Dates: start: 20090814
  4. FRISIUM [Concomitant]
     Indication: ANXIETY
     Route: 048
     Dates: start: 20090814
  5. NEXIUM [Concomitant]
     Route: 048
     Dates: start: 20060101
  6. PHENYTOIN SODIUM [Suspect]
     Indication: CONVULSION PROPHYLAXIS
     Route: 048
     Dates: start: 20090814, end: 20090905
  7. ENOXAPARIN SODIUM [Suspect]
     Indication: PULMONARY EMBOLISM
     Route: 058
     Dates: start: 20090813, end: 20090909
  8. LASIX [Suspect]
     Dates: start: 20090901
  9. KEPPRA [Concomitant]
     Indication: CONVULSION PROPHYLAXIS
     Route: 048
     Dates: start: 20090814

REACTIONS (5)
  - PRURITUS [None]
  - EOSINOPHILIA [None]
  - TRANSAMINASES INCREASED [None]
  - RASH ERYTHEMATOUS [None]
  - DRUG RASH WITH EOSINOPHILIA AND SYSTEMIC SYMPTOMS [None]
